FAERS Safety Report 10586904 (Version 1)
Quarter: 2014Q4

REPORT INFORMATION
  Report Type: Spontaneous
  Country: US (occurrence: US)
  Receive Date: 20141117
  Receipt Date: 20141117
  Transmission Date: 20150529
  Serious: No
  Sender: FDA-Public Use
  Company Number: US-AMGEN INC.-USASP2014088156

PATIENT
  Age: 67 Year
  Sex: Female

DRUGS (1)
  1. ENBREL [Suspect]
     Active Substance: ETANERCEPT
     Indication: RHEUMATOID ARTHRITIS
     Dosage: 50 MG, QWK
     Route: 065
     Dates: start: 20020601

REACTIONS (8)
  - Pain of skin [Not Recovered/Not Resolved]
  - Scab [Not Recovered/Not Resolved]
  - Animal scratch [Recovered/Resolved]
  - Local swelling [Not Recovered/Not Resolved]
  - Gingival injury [Recovered/Resolved]
  - Skin haemorrhage [Recovered/Resolved]
  - Erythema [Not Recovered/Not Resolved]
  - Tooth loss [Recovered/Resolved]

NARRATIVE: CASE EVENT DATE: 2012
